FAERS Safety Report 5478324-9 (Version None)
Quarter: 2007Q4

REPORT INFORMATION
  Report Type: 
  Country: None (occurrence: None)
  Receive Date: 20071005
  Receipt Date: 20070925
  Transmission Date: 20080405
  Serious: Yes (Other)
  Sender: FDA-Public Use
  Company Number: US-JNJFOC-20070806312

PATIENT
  Sex: Male
  Weight: 97.52 kg

DRUGS (5)
  1. INVEGA [Suspect]
     Indication: PARANOIA
     Route: 048
  2. INVEGA [Suspect]
     Indication: PSYCHOTIC DISORDER
     Route: 048
  3. PAXIL [Concomitant]
     Indication: ANXIETY
  4. KLONOPIN [Concomitant]
     Route: 048
  5. LUVOX [Concomitant]
     Route: 048

REACTIONS (1)
  - ELECTROCARDIOGRAM QT PROLONGED [None]
